FAERS Safety Report 6548301-5 (Version None)
Quarter: 2010Q1

REPORT INFORMATION
  Report Type: 
  Country: None (occurrence: None)
  Receive Date: 20100124
  Receipt Date: 20090430
  Transmission Date: 20100710
  Serious: No
  Sender: FDA-Public Use
  Company Number: US-ALLERGAN-0906009US

PATIENT
  Sex: Female

DRUGS (7)
  1. RESTASIS [Suspect]
     Indication: DRY EYE
     Dosage: UNK, QHS
     Route: 047
  2. SUDAFED 12 HOUR [Concomitant]
     Indication: SEASONAL ALLERGY
  3. BENADRYL [Concomitant]
     Indication: SEASONAL ALLERGY
     Dosage: UNK, QHS
  4. REFRESH CLASSIC [Concomitant]
     Indication: DRY EYE
     Dosage: UNK, PRN
     Route: 047
     Dates: start: 20081001
  5. REFRESH P.M. [Concomitant]
     Indication: DRY EYE
     Dosage: UNK, QHS
     Route: 047
     Dates: start: 20081001
  6. DOXYCYCLINE [Concomitant]
     Indication: PROPHYLAXIS
  7. DOXYCYCLINE [Concomitant]
     Indication: EYE INFECTION

REACTIONS (1)
  - EYE IRRITATION [None]
